FAERS Safety Report 21610613 (Version 1)
Quarter: 2022Q4

REPORT INFORMATION
  Report Type: Spontaneous
  Country: NL (occurrence: NL)
  Receive Date: 20221117
  Receipt Date: 20221117
  Transmission Date: 20230112
  Serious: Yes (Other)
  Sender: FDA-Public Use
  Company Number: NL-TEVA-2022-NL-2074638

PATIENT

DRUGS (1)
  1. MORPHINE SULFATE [Suspect]
     Active Substance: MORPHINE SULFATE
     Indication: Procedural pain
     Dosage: INITIAL DOSE WAS NOT STATED. LATER THE DOSE WAS INCREASED.
     Route: 065

REACTIONS (2)
  - Depressed level of consciousness [Not Recovered/Not Resolved]
  - Communication disorder [Not Recovered/Not Resolved]
